FAERS Safety Report 7450165-2 (Version None)
Quarter: 2011Q2

REPORT INFORMATION
  Report Type: 
  Country: None (occurrence: None)
  Receive Date: 20110422
  Receipt Date: 20110407
  Transmission Date: 20111010
  Serious: Yes (Disabling)
  Sender: FDA-Public Use
  Company Number: 1000020159

PATIENT
  Age: 53 Year
  Sex: Female
  Weight: 58 kg

DRUGS (5)
  1. OMEPRAZOLE [Concomitant]
  2. SIGNULAIR (MOTELUKAST) [Concomitant]
  3. DALIRESP [Suspect]
     Indication: CHRONIC OBSTRUCTIVE PULMONARY DISEASE
     Dosage: 500 MCG (500 MCG,1 IN 1 D),ORAL
     Route: 048
     Dates: start: 20110216, end: 20110318
  4. SYMICORT FORTE (BUDESONIDE FORMOTEROL FUMARATE0 (BUDESONIDE, FORMOTERO [Concomitant]
  5. ARAMIS (ARAMIS) (ARAMIS) [Concomitant]

REACTIONS (5)
  - WEIGHT DECREASED [None]
  - MUSCLE SPASMS [None]
  - ASTHENIA [None]
  - PARAESTHESIA [None]
  - NERVOUSNESS [None]
